FAERS Safety Report 24069005 (Version 1)
Quarter: 2024Q3

REPORT INFORMATION
  Report Type: Spontaneous
  Country: RU (occurrence: RU)
  Receive Date: 20240710
  Receipt Date: 20240710
  Transmission Date: 20241016
  Serious: No
  Sender: ROCHE
  Company Number: RU-ROCHE-3547687

PATIENT
  Age: 72 Year
  Sex: Female

DRUGS (5)
  1. ALECTINIB [Suspect]
     Active Substance: ALECTINIB
     Indication: Lung adenocarcinoma
     Route: 065
     Dates: start: 202009, end: 202208
  2. PACLITAXEL [Concomitant]
     Active Substance: PACLITAXEL
     Dates: start: 202209, end: 202212
  3. CARBOPLATIN [Concomitant]
     Active Substance: CARBOPLATIN
     Dates: start: 202209, end: 202212
  4. LORLATINIB [Concomitant]
     Active Substance: LORLATINIB
     Dates: start: 20230719, end: 202402
  5. PEMETREXED [Concomitant]
     Active Substance: PEMETREXED
     Dates: start: 202402

REACTIONS (2)
  - Disease progression [Unknown]
  - Soft tissue swelling [Unknown]

NARRATIVE: CASE EVENT DATE: 20220601
